FAERS Safety Report 17064958 (Version 1)
Quarter: 2019Q4

REPORT INFORMATION
  Report Type: Spontaneous
  Country: US (occurrence: US)
  Receive Date: 20191024
  Receipt Date: 20191024
  Transmission Date: 20200122
  Serious: No
  Sender: FDA-Public Use
  Company Number: None

PATIENT

DRUGS (2)
  1. ROCURONIUM BROMIDE. [Suspect]
     Active Substance: ROCURONIUM BROMIDE
     Route: 042
  2. HUMULIN R [Suspect]
     Active Substance: INSULIN HUMAN
     Route: 051

REACTIONS (3)
  - Product packaging confusion [None]
  - Product dispensing error [None]
  - Intercepted product storage error [None]
